FAERS Safety Report 4697962-4 (Version None)
Quarter: 2005Q2

REPORT INFORMATION
  Report Type: 
  Country: None (occurrence: None)
  Receive Date: 20050621
  Receipt Date: 20050607
  Transmission Date: 20051028
  Serious: No
  Sender: FDA-Public Use
  Company Number: 05H-163-0300443-00

PATIENT
  Age: 32 Year
  Sex: Female

DRUGS (3)
  1. LIDOCAINE HYDROCHLORIDE 1% W/ EPINEPHRINE INJ [Suspect]
     Indication: ANAESTHESIA
     Dosage: INJECTION
     Dates: start: 20050606
  2. PROAZAC (PAROXETINE HYDROCHLORIDE) [Concomitant]
  3. IBUPROFEN [Concomitant]

REACTIONS (12)
  - APHASIA [None]
  - ASTHENIA [None]
  - DRUG INTERACTION [None]
  - DRUG TOXICITY [None]
  - HYPOTENSION [None]
  - INFUSION RELATED REACTION [None]
  - MENTAL STATUS CHANGES [None]
  - MOTOR DYSFUNCTION [None]
  - NAUSEA [None]
  - PAIN [None]
  - TREMOR [None]
  - VISUAL DISTURBANCE [None]
